FAERS Safety Report 7605447-8 (Version None)
Quarter: 2011Q3

REPORT INFORMATION
  Report Type: 
  Country: None (occurrence: None)
  Receive Date: 20110713
  Receipt Date: 20110707
  Transmission Date: 20111222
  Serious: No
  Sender: FDA-Public Use
  Company Number: US-PFIZER INC-2011154275

PATIENT
  Sex: Male
  Weight: 103 kg

DRUGS (8)
  1. SIMVASTATIN [Concomitant]
     Indication: BLOOD CHOLESTEROL ABNORMAL
     Dosage: 40 MG, UNK
  2. PROTONIX [Suspect]
     Indication: GASTROOESOPHAGEAL REFLUX DISEASE
     Dosage: 40 MG, DAILY
     Route: 048
     Dates: start: 20110622, end: 20110706
  3. ACCOLATE [Concomitant]
     Indication: ASTHMA
     Dosage: 20 MG, UNK
  4. FLOMAX [Suspect]
     Indication: URINARY TRACT DISORDER
     Dosage: UNK
  5. PRILOSEC [Concomitant]
     Indication: GASTROOESOPHAGEAL REFLUX DISEASE
     Dosage: 20 MG, DAILY
     Dates: start: 19950101, end: 20110601
  6. FLOVENT HFA [Concomitant]
     Indication: ASTHMA
     Dosage: 220 UG, UNK
  7. PLAVIX [Concomitant]
     Dosage: 75 MG, DAILY
  8. PEPCID [Suspect]
     Indication: GASTROOESOPHAGEAL REFLUX DISEASE
     Dosage: UNK

REACTIONS (6)
  - HYPOAESTHESIA [None]
  - ASTHENIA [None]
  - FEELING ABNORMAL [None]
  - LOSS OF LIBIDO [None]
  - ANGER [None]
  - FATIGUE [None]
